FAERS Safety Report 16295248 (Version 1)
Quarter: 2019Q2

REPORT INFORMATION
  Report Type: Spontaneous
  Country: US (occurrence: US)
  Receive Date: 20190509
  Receipt Date: 20190509
  Transmission Date: 20190711
  Serious: No
  Sender: FDA-Public Use
  Company Number: US-ROCHE-2200220

PATIENT
  Age: 66 Year
  Sex: Male
  Weight: 107.14 kg

DRUGS (4)
  1. LOSARTAN. [Concomitant]
     Active Substance: LOSARTAN
     Indication: HYPERTENSION
     Dosage: ONGOING:YES
     Route: 065
  2. ASPIRIN [ACETYLSALICYLIC ACID] [Concomitant]
     Active Substance: ASPIRIN
     Dosage: LOW DOSE ;ONGOING: YES
     Route: 065
  3. ESBRIET [Suspect]
     Active Substance: PIRFENIDONE
     Indication: INTERSTITIAL LUNG DISEASE
     Dosage: THREE 267 MG TABLETS 3X^S DAY ;ONGOING: NO
     Route: 048
     Dates: start: 201708, end: 201806
  4. ESBRIET [Suspect]
     Active Substance: PIRFENIDONE
     Dosage: TWO 267 MG TABLETS 3X^S DAY ;ONGOING: NO
     Route: 048
     Dates: start: 201806, end: 20180927

REACTIONS (2)
  - Photosensitivity reaction [Recovering/Resolving]
  - Sunburn [Recovering/Resolving]

NARRATIVE: CASE EVENT DATE: 201806
